FAERS Safety Report 24165695 (Version 1)
Quarter: 2024Q3

REPORT INFORMATION
  Report Type: Spontaneous
  Country: US (occurrence: US)
  Receive Date: 20240802
  Receipt Date: 20240802
  Transmission Date: 20241017
  Serious: Yes (Death)
  Sender: STRIDES
  Company Number: US-STRIDES ARCOLAB LIMITED-2024SP009334

PATIENT
  Age: 67 Year
  Sex: Female

DRUGS (4)
  1. RANITIDINE [Suspect]
     Active Substance: RANITIDINE
     Indication: Dyspepsia
     Dosage: UNK, RANITIDINE TABLETS AND CAPSULES (PRESCRIPTION)
     Route: 065
     Dates: start: 2013, end: 2018
  2. RANITIDINE [Suspect]
     Active Substance: RANITIDINE
     Indication: Gastrooesophageal reflux disease
     Dosage: UNK, RANITIDINE TABLETS AND CAPSULES (OVER THE COUNTER)
     Route: 065
     Dates: start: 2013, end: 2018
  3. RANITIDINE [Suspect]
     Active Substance: RANITIDINE
     Dosage: UNK, QD (RANITIDINE (ZANTAC) TABLETS AND CAPSULES) (PRESCRIPTION)
     Route: 065
     Dates: start: 2013, end: 2018
  4. RANITIDINE [Suspect]
     Active Substance: RANITIDINE
     Dosage: UNK, QD (RANITIDINE (ZANTAC) TABLETS AND CAPSULE)S (OVER THE COUNTER)
     Route: 065
     Dates: start: 2013, end: 2018

REACTIONS (1)
  - Breast cancer [Fatal]

NARRATIVE: CASE EVENT DATE: 20181101
